FAERS Safety Report 9296043 (Version 3)
Quarter: 2013Q4

REPORT INFORMATION
  Report Type: Spontaneous
  Country: US (occurrence: US)
  Receive Date: 20130517
  Receipt Date: 20131219
  Transmission Date: 20140711
  Serious: Yes (Hospitalization)
  Sender: FDA-Public Use
  Company Number: US-B.I. PHARMACEUTICALS,INC./RIDGEFIELD-2013-BI-13383BP

PATIENT
  Age: 84 Year
  Sex: Female
  Weight: 72.57 kg

DRUGS (19)
  1. PRADAXA [Suspect]
     Indication: ANTICOAGULANT THERAPY
     Dosage: 300 MG
     Route: 048
     Dates: start: 20110204, end: 20111128
  2. PRADAXA [Suspect]
     Indication: ATRIAL FIBRILLATION
  3. MELATONIN [Concomitant]
     Dosage: 2.5 MG
     Route: 048
  4. LEVOTHYROXINE SODIUM [Concomitant]
     Dosage: 125 MCG
     Route: 048
  5. FLECAINIDE ACETATE [Concomitant]
     Dosage: 200 MG
     Route: 048
  6. ATENOLOL [Concomitant]
     Dosage: 100 MG
     Route: 048
  7. NORVASC [Concomitant]
     Dosage: 5 MG
     Route: 048
  8. VALIUM [Concomitant]
     Route: 048
  9. PRAVACHOL [Concomitant]
     Dosage: 20 MG
     Route: 048
  10. FENOFIBRATE [Concomitant]
     Dosage: 54 MG
     Route: 048
  11. IRON [Concomitant]
     Dosage: 650 MG
     Route: 048
  12. DIOVAN [Concomitant]
     Route: 048
  13. ACETAMINOPHEN EXTRA STRENTH [Concomitant]
     Route: 048
  14. IPRATROPIUM BROMIDE [Concomitant]
     Route: 045
  15. MULTIVITAMIN [Concomitant]
     Route: 048
  16. NEXIUM [Concomitant]
     Dosage: 40 MG
     Route: 048
  17. PRESERVISION [Concomitant]
     Route: 048
  18. VITAMIN D [Concomitant]
     Dosage: 1000 U
     Route: 048
  19. XALATAN [Concomitant]
     Route: 031

REACTIONS (1)
  - Cerebral haemorrhage [Unknown]
